FAERS Safety Report 10748831 (Version 1)
Quarter: 2015Q1

REPORT INFORMATION
  Report Type: Spontaneous
  Country: US (occurrence: None)
  Receive Date: 20150128
  Receipt Date: 20150128
  Transmission Date: 20150721
  Serious: Yes (Disabling)
  Sender: FDA-Public Use
  Company Number: None

PATIENT
  Age: 40 Year
  Sex: Female
  Weight: 54.43 kg

DRUGS (1)
  1. PARAGARD T 380A [Suspect]
     Active Substance: COPPER
     Dates: start: 20131021, end: 20141218

REACTIONS (9)
  - Dyspareunia [None]
  - Back disorder [None]
  - Abasia [None]
  - Joint instability [None]
  - Menstrual disorder [None]
  - Dysmenorrhoea [None]
  - Muscle spasms [None]
  - Vaginal haemorrhage [None]
  - Intervertebral disc protrusion [None]

NARRATIVE: CASE EVENT DATE: 20141020
